FAERS Safety Report 10073787 (Version 2)
Quarter: 2014Q2

REPORT INFORMATION
  Report Type: Spontaneous
  Country: ZA (occurrence: ZA)
  Receive Date: 20140411
  Receipt Date: 20140411
  Transmission Date: 20141212
  Serious: Yes (Other)
  Sender: FDA-Public Use
  Company Number: ZA-ABBVIE-13A-143-1070047-00

PATIENT
  Age: 10 Year
  Sex: Female
  Weight: 30 kg

DRUGS (15)
  1. CLARITHROMYCIN [Suspect]
     Indication: TUBERCULOSIS
  2. LINEZOLID [Suspect]
     Indication: TUBERCULOSIS
  3. LINEZOLID [Suspect]
  4. LAMIVUDINE [Suspect]
     Indication: ANTIRETROVIRAL THERAPY
  5. CAPREOMYCIN [Suspect]
     Indication: TUBERCULOSIS
  6. TERIZIDONE [Suspect]
     Indication: TUBERCULOSIS
  7. TERIZIDONE [Suspect]
  8. STAVUDINE [Suspect]
     Indication: ANTIRETROVIRAL THERAPY
  9. PYRAZINAMIDE [Suspect]
     Indication: TUBERCULOSIS
  10. PARA-AMINOSALICYLIC ACID [Suspect]
     Indication: TUBERCULOSIS
  11. ISONIAZIDE [Suspect]
     Indication: TUBERCULOSIS
  12. EFAVIRENZ [Suspect]
     Indication: ANTIRETROVIRAL THERAPY
  13. OFLOXACIN [Suspect]
     Indication: TUBERCULOSIS
  14. AMOXICILLIN/CLAVULANIC ACID [Suspect]
     Indication: TUBERCULOSIS
  15. ABACAVIR [Suspect]
     Indication: ANTIRETROVIRAL THERAPY

REACTIONS (3)
  - Neuropathy peripheral [Recovered/Resolved]
  - Leukopenia [Unknown]
  - Anaemia [Unknown]
